FAERS Safety Report 6710132-0 (Version None)
Quarter: 2010Q2

REPORT INFORMATION
  Report Type: 
  Country: None (occurrence: None)
  Receive Date: 20100504
  Receipt Date: 20100426
  Transmission Date: 20101027
  Serious: Yes (Disabling)
  Sender: FDA-Public Use
  Company Number: JP-ROCHE-700049

PATIENT
  Sex: Female

DRUGS (15)
  1. TOCILIZUMAB [Suspect]
     Indication: RHEUMATOID ARTHRITIS
     Route: 041
     Dates: start: 20090623, end: 20090623
  2. TOCILIZUMAB [Suspect]
     Route: 041
     Dates: start: 20090722, end: 20090722
  3. TOCILIZUMAB [Suspect]
     Route: 041
     Dates: start: 20090818, end: 20090818
  4. TOCILIZUMAB [Suspect]
     Route: 041
     Dates: start: 20090916, end: 20090916
  5. TOCILIZUMAB [Suspect]
     Route: 041
     Dates: start: 20091014, end: 20091014
  6. TOCILIZUMAB [Suspect]
     Route: 041
     Dates: start: 20091118
  7. AZULFIDINE [Concomitant]
     Dosage: FORM: ENTERIC COATING DRUG.
     Route: 048
     Dates: end: 20090826
  8. PREDNISOLONE [Concomitant]
     Dosage: FORM: PERORAL AGENT.
     Route: 048
     Dates: end: 20090818
  9. MOBIC [Concomitant]
     Route: 048
  10. PARIET [Concomitant]
     Route: 048
  11. TIZANIDINE HCL [Concomitant]
     Dosage: FORM: PERORAL AGENT.
     Route: 048
  12. JUVELA N [Concomitant]
     Dosage: FORM: PERORAL AGENT.
     Route: 048
  13. METHYCOBAL [Concomitant]
     Dosage: FORM: PERORAL AGENT.
     Route: 048
  14. POLLAKISU [Concomitant]
     Route: 048
  15. LENDORMIN [Concomitant]
     Route: 048

REACTIONS (1)
  - TENDON RUPTURE [None]
